FAERS Safety Report 13387227 (Version 1)
Quarter: 2017Q1

REPORT INFORMATION
  Report Type: Spontaneous
  Country: HK (occurrence: HK)
  Receive Date: 20170330
  Receipt Date: 20170330
  Transmission Date: 20170429
  Serious: Yes (Hospitalization)
  Sender: FDA-Public Use
  Company Number: HK-IMPAX LABORATORIES, INC-2017-IPXL-00738

PATIENT
  Age: 51 Year
  Sex: Female
  Weight: 55 kg

DRUGS (1)
  1. METHADONE HYDROCHLORIDE. [Suspect]
     Active Substance: METHADONE HYDROCHLORIDE
     Indication: PRODUCT USED FOR UNKNOWN INDICATION
     Dosage: 250 ML, ESTIMATED DOSE 18.2 MG/KG, SINGLE
     Route: 048

REACTIONS (6)
  - Hypoglycaemia [Recovered/Resolved]
  - Depressed level of consciousness [Recovered/Resolved]
  - Intentional overdose [Recovered/Resolved]
  - Sinus tachycardia [Recovered/Resolved]
  - Miosis [Recovered/Resolved]
  - Hypoventilation [Recovered/Resolved]
